FAERS Safety Report 22084422 (Version 2)
Quarter: 2025Q2

REPORT INFORMATION
  Report Type: Report from Study
  Country: US (occurrence: US)
  Receive Date: 20230310
  Receipt Date: 20250404
  Transmission Date: 20250716
  Serious: Yes (Other)
  Sender: TAKEDA
  Company Number: US-TAKEDA-2023TUS025347

PATIENT
  Sex: Female

DRUGS (2)
  1. PENTASA [Suspect]
     Active Substance: MESALAMINE
     Indication: Crohn^s disease
  2. PENTASA [Suspect]
     Active Substance: MESALAMINE
     Dosage: 500 MILLIGRAM, TID

REACTIONS (3)
  - Parkinson^s disease [Unknown]
  - Off label use [Unknown]
  - Complication associated with device [Unknown]
